FAERS Safety Report 7328593-5 (Version None)
Quarter: 2011Q1

REPORT INFORMATION
  Report Type: 
  Country: None (occurrence: None)
  Receive Date: 20110222
  Receipt Date: 20110215
  Transmission Date: 20110831
  Serious: Yes (Other)
  Sender: FDA-Public Use
  Company Number: 2011SP007069

PATIENT
  Age: 31 Year
  Sex: Female

DRUGS (7)
  1. VALIUM [Suspect]
     Indication: PRODUCT USED FOR UNKNOWN INDICATION
     Dosage: 5 MG; BID;
  2. METHADON (METHADONE HYDROCHLORIDE) [Suspect]
     Indication: PRODUCT USED FOR UNKNOWN INDICATION
  3. REMERON [Suspect]
     Indication: PRODUCT USED FOR UNKNOWN INDICATION
     Dosage: 30 MG; QD;
  4. PRIMPERAN TAB [Suspect]
     Indication: PRODUCT USED FOR UNKNOWN INDICATION
  5. RITALIN [Suspect]
     Indication: PRODUCT USED FOR UNKNOWN INDICATION
  6. RIVOTRIL (CLONAZEPAM) [Suspect]
     Indication: PRODUCT USED FOR UNKNOWN INDICATION
     Dosage: 2 MG; TID;
  7. TARDYFERON [Concomitant]

REACTIONS (3)
  - ABORTION INDUCED [None]
  - PREGNANCY [None]
  - DRUG EXPOSURE DURING PREGNANCY [None]
